FAERS Safety Report 22010311 (Version 1)
Quarter: 2023Q1

REPORT INFORMATION
  Report Type: Spontaneous
  Country: NL (occurrence: NL)
  Receive Date: 20230220
  Receipt Date: 20230220
  Transmission Date: 20230418
  Serious: Yes (Other)
  Sender: FDA-Public Use
  Company Number: None

PATIENT
  Sex: Female

DRUGS (1)
  1. METHYLDOPA [Suspect]
     Active Substance: METHYLDOPA
     Dosage: TABLET 500 MG, 3X PER DAY 2 PIECES
     Route: 064
     Dates: start: 20100101

REACTIONS (4)
  - Precocious puberty [Not Recovered/Not Resolved]
  - Foetal exposure during pregnancy [Unknown]
  - Growth retardation [Unknown]
  - Premature menarche [Not Recovered/Not Resolved]
